FAERS Safety Report 24650081 (Version 1)
Quarter: 2024Q4

REPORT INFORMATION
  Report Type: Spontaneous
  Country: CN (occurrence: CN)
  Receive Date: 20241122
  Receipt Date: 20241122
  Transmission Date: 20250115
  Serious: Yes (Hospitalization, Other)
  Sender: MERCK KGAA
  Company Number: CN-Merck Healthcare KGaA-2024061309

PATIENT
  Age: 25 Year
  Sex: Female
  Weight: 70 kg

DRUGS (4)
  1. EUTHYROX [Suspect]
     Active Substance: LEVOTHYROXINE SODIUM
     Indication: Hypothyroidism
     Route: 048
     Dates: start: 20240710, end: 20241116
  2. DEXAMETHASONE [Concomitant]
     Active Substance: DEXAMETHASONE
     Indication: Maternal therapy to enhance foetal lung maturity
     Dates: start: 20241113
  3. MAGNESIUM SULFATE [Concomitant]
     Active Substance: MAGNESIUM SULFATE
     Indication: Uterine contractions abnormal
     Dates: start: 20241113
  4. ALLYLESTRENOL [Concomitant]
     Active Substance: ALLYLESTRENOL
     Indication: Product used for unknown indication

REACTIONS (1)
  - Premature labour [Recovering/Resolving]

NARRATIVE: CASE EVENT DATE: 20241112
